FAERS Safety Report 9888256 (Version 1)
Quarter: 2014Q1

REPORT INFORMATION
  Report Type: Spontaneous
  Country: US (occurrence: None)
  Receive Date: 20140210
  Receipt Date: 20140210
  Transmission Date: 20141002
  Serious: Yes (Other)
  Sender: FDA-Public Use
  Company Number: None

PATIENT
  Age: 48 Year
  Sex: Female
  Weight: 65.32 kg

DRUGS (1)
  1. LEVOFLOXACIN 500 MG [Suspect]
     Indication: ACUTE SINUSITIS
     Dosage: 1XA DAY ONCE DAILY TAKEN BY MOUTH
     Route: 048
     Dates: start: 20140130, end: 20140202

REACTIONS (6)
  - Nausea [None]
  - Arthralgia [None]
  - Joint swelling [None]
  - Gait disturbance [None]
  - Activities of daily living impaired [None]
  - Heart rate increased [None]
